FAERS Safety Report 25426856 (Version 2)
Quarter: 2025Q3

REPORT INFORMATION
  Report Type: Report from Study
  Country: US (occurrence: US)
  Receive Date: 20250612
  Receipt Date: 20250704
  Transmission Date: 20251020
  Serious: Yes (Hospitalization)
  Sender: BIOGEN
  Company Number: US-BIOGEN-2025BI01313448

PATIENT
  Sex: Male

DRUGS (2)
  1. SKYCLARYS [Suspect]
     Active Substance: OMAVELOXOLONE
     Indication: Friedreich^s ataxia
     Dosage: 50MG, 3 CAPSULES ONCE DAILY, ORAL
     Route: 050
     Dates: start: 20250412
  2. SKYCLARYS [Suspect]
     Active Substance: OMAVELOXOLONE
     Dosage: 50MG, 3 CAPSULES ONCE DAILY, ORAL
     Route: 050
     Dates: start: 20250412

REACTIONS (1)
  - Diabetes mellitus [Unknown]
